FAERS Safety Report 6235307 (Version 5)
Quarter: 2018Q4

REPORT INFORMATION
  Report Type: Spontaneous
  Country: FR (occurrence: FR)
  Receive Date: 20070209
  Receipt Date: 20181130
  Transmission Date: 20190205
  Serious: Yes (Life-Threatening, Hospitalization, Other)
  Sender: FDA-Public Use
  Company Number: FR-PFIZER INC-2007009246

PATIENT
  Age: 92 Year
  Sex: Female
  Weight: 59 kg

DRUGS (21)
  1. BISEPTINE [Concomitant]
     Active Substance: BENZALKONIUM CHLORIDE\BENZYL ALCOHOL\CHLORHEXIDINE
     Indication: HERPES ZOSTER
     Dosage: UNK
     Dates: start: 20061205
  2. COAPROVEL [Concomitant]
     Active Substance: HYDROCHLOROTHIAZIDE\IRBESARTAN
     Dosage: ONCE DAILY IN THE MORNING
  3. PROPOFAN [Concomitant]
     Active Substance: ACETAMINOPHEN\CAFFEINE\PROPOXYPHENE
     Indication: PAIN
     Dosage: UNK, AS NEEDED
  4. ZELITREX [Concomitant]
     Active Substance: VALACYCLOVIR HYDROCHLORIDE
     Dosage: 3 MG, DAILY (3 MG/DAY)
     Dates: start: 20061205
  5. ACEPROMAZINE [Concomitant]
     Active Substance: ACEPROMAZINE
     Dosage: UNK
  6. NOCTRAN [Concomitant]
     Active Substance: ACEPROMAZINE MALEATE\ACEPROMETAZINE\CLORAZEPATE DIPOTASSIUM
  7. HYPERIUM [Concomitant]
     Active Substance: RILMENIDINE PHOSPHATE
     Dosage: UNK
  8. ACTONEL [Concomitant]
     Active Substance: RISEDRONATE SODIUM
     Dosage: 35, ONE TABLET WEEKLY
  9. LYRICA [Suspect]
     Active Substance: PREGABALIN
     Indication: PAIN
     Dosage: 25 MG, 1X/DAY (ONE 25 MG TABLET)
     Route: 048
     Dates: start: 20061211, end: 20061212
  10. PARIET [Concomitant]
     Active Substance: RABEPRAZOLE SODIUM
     Dosage: 20, ONCE DAILY
  11. ZELITREX [Concomitant]
     Active Substance: VALACYCLOVIR HYDROCHLORIDE
     Dosage: 2 G, DAILY
  12. TOPALGIC [Concomitant]
     Dosage: UNK
  13. DETENSIEL [Concomitant]
     Active Substance: BISOPROLOL FUMARATE
     Dosage: TWICE DAILY (MORNING AND EVENING)
  14. LOXEN [NICARDIPINE HYDROCHLORIDE] [Concomitant]
     Active Substance: NICARDIPINE HYDROCHLORIDE
     Dosage: 50 LP, TWICE DAILY (MORNING AND EVENING)
  15. AERIUS (DESLORATADINE) [Concomitant]
     Active Substance: DESLORATADINE
     Dosage: UNK, 1X/DAY
  16. ALLOPURINOL. [Concomitant]
     Active Substance: ALLOPURINOL
     Dosage: 100, ONCE DAILY
  17. PARACETAMOL [Concomitant]
     Active Substance: ACETAMINOPHEN
     Dosage: UNK
  18. LYRICA [Suspect]
     Active Substance: PREGABALIN
     Indication: POST HERPETIC NEURALGIA
  19. ZELITREX [Concomitant]
     Active Substance: VALACYCLOVIR HYDROCHLORIDE
     Indication: HERPES ZOSTER
     Dosage: 500, 2 TABLETS THREE TIMES DAILY,
  20. RETINOL [Concomitant]
     Active Substance: RETINOL
     Dosage: UNK
  21. ACICLOVIR [Concomitant]
     Active Substance: ACYCLOVIR
     Indication: HERPES ZOSTER
     Dosage: TWICE DAILY
     Dates: start: 20061205

REACTIONS (4)
  - Tachyarrhythmia [Recovering/Resolving]
  - Sinus tachycardia [Recovered/Resolved]
  - Cardiac failure congestive [Unknown]
  - Atrial fibrillation [Unknown]

NARRATIVE: CASE EVENT DATE: 20061212
